FAERS Safety Report 8014584-8 (Version None)
Quarter: 2011Q4

REPORT INFORMATION
  Report Type: 
  Country: None (occurrence: None)
  Receive Date: 20111229
  Receipt Date: 20111223
  Transmission Date: 20120403
  Serious: Yes (Hospitalization)
  Sender: FDA-Public Use
  Company Number: US-GILEAD-2011-0048449

PATIENT
  Age: 79 Year
  Sex: Male

DRUGS (2)
  1. LETAIRIS [Suspect]
     Indication: PRODUCT USED FOR UNKNOWN INDICATION
     Dosage: 5 MG, UNK
     Route: 048
     Dates: start: 20110830
  2. ADCIRCA [Concomitant]

REACTIONS (4)
  - ATRIAL FIBRILLATION [None]
  - HAEMORRHAGE [None]
  - CARDIAC FAILURE CONGESTIVE [None]
  - RENAL ARTERY OCCLUSION [None]
